FAERS Safety Report 14578534 (Version 1)
Quarter: 2018Q1

REPORT INFORMATION
  Report Type: Spontaneous
  Country: US (occurrence: US)
  Receive Date: 20180227
  Receipt Date: 20180227
  Transmission Date: 20180509
  Serious: No
  Sender: FDA-Public Use
  Company Number: US-ASTRAZENECA-2018SE20606

PATIENT
  Age: 44 Year
  Sex: Female

DRUGS (10)
  1. SEROQUEL [Suspect]
     Active Substance: QUETIAPINE FUMARATE
     Indication: AFFECTIVE DISORDER
     Dosage: 800.0MG UNKNOWN
     Route: 048
  2. WELLBUTRIN [Suspect]
     Active Substance: BUPROPION HYDROCHLORIDE
     Indication: PRODUCT USED FOR UNKNOWN INDICATION
  3. TOPAMAX [Suspect]
     Active Substance: TOPIRAMATE
     Indication: PRODUCT USED FOR UNKNOWN INDICATION
     Route: 065
  4. ABILIFY [Suspect]
     Active Substance: ARIPIPRAZOLE
     Indication: HALLUCINATION
     Route: 065
     Dates: start: 2009
  5. SEROQUEL [Suspect]
     Active Substance: QUETIAPINE FUMARATE
     Indication: AFFECTIVE DISORDER
     Dosage: 600.0MG UNKNOWN
     Route: 048
  6. EFFEXOR [Suspect]
     Active Substance: VENLAFAXINE HYDROCHLORIDE
     Indication: AFFECTIVE DISORDER
     Route: 065
  7. SEROQUEL [Suspect]
     Active Substance: QUETIAPINE FUMARATE
     Indication: AFFECTIVE DISORDER
     Dosage: 500.0MG UNKNOWN
     Route: 048
  8. SEROQUEL [Suspect]
     Active Substance: QUETIAPINE FUMARATE
     Indication: AFFECTIVE DISORDER
     Dosage: 500.0MG UNKNOWN
     Route: 048
     Dates: start: 201801
  9. LITHIUM. [Suspect]
     Active Substance: LITHIUM
     Indication: PRODUCT USED FOR UNKNOWN INDICATION
     Route: 065
  10. SEROQUEL [Suspect]
     Active Substance: QUETIAPINE FUMARATE
     Indication: AFFECTIVE DISORDER
     Dosage: 200.0MG UNKNOWN
     Route: 048

REACTIONS (12)
  - Confusional state [Recovering/Resolving]
  - Psychotic disorder [Recovering/Resolving]
  - Glucose tolerance impaired [Not Recovered/Not Resolved]
  - Fatigue [Recovering/Resolving]
  - Schizophrenia [Not Recovered/Not Resolved]
  - Bipolar disorder [Recovering/Resolving]
  - Therapeutic response unexpected [Recovering/Resolving]
  - Drug ineffective [Unknown]
  - Weight fluctuation [Unknown]
  - Hypersomnia [Recovering/Resolving]
  - Sedation [Recovering/Resolving]
  - Food craving [Recovering/Resolving]

NARRATIVE: CASE EVENT DATE: 2017
